FAERS Safety Report 14945879 (Version 1)
Quarter: 2018Q2

REPORT INFORMATION
  Report Type: Report from Study
  Country: BR (occurrence: BR)
  Receive Date: 20180529
  Receipt Date: 20180529
  Transmission Date: 20180711
  Serious: Yes (Death, Hospitalization, Other)
  Sender: FDA-Public Use
  Company Number: PHHY2018BR009529

PATIENT
  Age: 78 Year
  Sex: Female
  Weight: 70 kg

DRUGS (6)
  1. LANTUS [Concomitant]
     Active Substance: INSULIN GLARGINE
     Indication: DIABETES MELLITUS
     Dosage: 24 IU, QD (10 YEARS AGO)
     Route: 058
     Dates: end: 201802
  2. SIMVASTATIN. [Concomitant]
     Active Substance: SIMVASTATIN
     Indication: BLOOD DISORDER
     Dosage: 1 DF, QD (10 YEARS AGO)
     Route: 048
     Dates: end: 201802
  3. AMLODIPINE [Concomitant]
     Active Substance: AMLODIPINE BESYLATE
     Indication: HYPERTENSION
     Dosage: 1 DF, QD (15 YEARS AGO)
     Route: 048
     Dates: end: 201802
  4. METFORMIN [Concomitant]
     Active Substance: METFORMIN HYDROCHLORIDE
     Indication: DIABETES MELLITUS
     Dosage: 2 DF, QD (30 YEARS AGO)
     Route: 048
     Dates: end: 201802
  5. ACLASTA [Suspect]
     Active Substance: ZOLEDRONIC ACID
     Indication: OSTEOPOROSIS
     Dosage: 1 DF (5MG/100ML), Q12MO
     Route: 042
     Dates: start: 20170712, end: 20170712
  6. RIVOTRIL [Concomitant]
     Active Substance: CLONAZEPAM
     Indication: INSOMNIA
     Dosage: 1 DF, QD (10 YEARS AGO)
     Route: 048

REACTIONS (7)
  - Abdominal pain [Fatal]
  - Fungal infection [Unknown]
  - Ulcer [Unknown]
  - Abdominal distension [Fatal]
  - Ascites [Fatal]
  - Coma hepatic [Fatal]
  - Hepatic cirrhosis [Fatal]

NARRATIVE: CASE EVENT DATE: 201711
